FAERS Safety Report 6950081 (Version 2)
Quarter: 2013Q2

REPORT INFORMATION
  Report Type: Spontaneous
  Country: US (occurrence: None)
  Receive Date: 20090227
  Receipt Date: 20130301
  Transmission Date: 20140414
  Serious: Yes (Hospitalization, Other)
  Sender: FDA-Public Use
  Company Number: RB-6831-2008

PATIENT
  Sex: Female
  Weight: 3.1 kg

DRUGS (8)
  1. SUBOXONE [Suspect]
     Indication: PRODUCT USED FOR UNKNOWN INDICATION
     Dosage: 8 MG TID TRANSPLACLELNTAL
     Route: 064
     Dates: start: 200801, end: 20080406
  2. SUBUTEX [Suspect]
     Indication: PRODUCT USED FOR UNKNOWN INDICATION
     Dosage: 8 MG TID TRANSPLACENTAL
     Route: 064
     Dates: start: 20080407, end: 20081112
  3. WELLBUTRIN [Concomitant]
  4. LAMICTAL [Concomitant]
  5. PRENATAL VITAMINS [Concomitant]
  6. ROBITUSSIN DM [Concomitant]
  7. ZITHROMAX [Concomitant]
  8. VENTOLIN [Concomitant]

REACTIONS (3)
  - MATERNAL EXPOSURE DURING PREGNANCY [None]
  - DRUG WITHDRAWAL SYNDROME NEONATAL [None]
  - Foetal exposure during pregnancy [None]
